FAERS Safety Report 24899349 (Version 3)
Quarter: 2025Q2

REPORT INFORMATION
  Report Type: Report from Study
  Country: DE (occurrence: DE)
  Receive Date: 20250129
  Receipt Date: 20250627
  Transmission Date: 20250716
  Serious: No
  Sender: UCB
  Company Number: DE-UCBSA-2025004101

PATIENT
  Age: 48 Year
  Sex: Male
  Weight: 83 kg

DRUGS (9)
  1. BIMEKIZUMAB [Suspect]
     Active Substance: BIMEKIZUMAB
     Indication: Axial spondyloarthritis
     Dosage: 160 MILLIGRAM, MONTHLY (QM)
     Route: 058
     Dates: start: 20240709, end: 20241105
  2. ETORICOXIB [Concomitant]
     Active Substance: ETORICOXIB
     Indication: Product used for unknown indication
     Dosage: 90 MILLIGRAM, ONCE DAILY (QD)
     Dates: start: 20220127
  3. IXEKIZUMAB [Concomitant]
     Active Substance: IXEKIZUMAB
     Indication: Product used for unknown indication
     Dates: start: 202210, end: 20240611
  4. OXYBUTYNIN [Concomitant]
     Active Substance: OXYBUTYNIN
     Indication: Dysuria
     Dosage: 2.5 MILLIGRAM, ONCE DAILY (QD)
     Dates: start: 201908
  5. CANDESARTAN [Concomitant]
     Active Substance: CANDESARTAN
     Indication: Hypertension
     Dosage: 16 MILLIGRAM, ONCE DAILY (QD)
     Dates: start: 2014
  6. AMLODIPINE [Concomitant]
     Active Substance: AMLODIPINE BESYLATE
     Indication: Hypertension
     Dosage: 5 MILLIGRAM, 2X/DAY (BID)
     Dates: start: 20180227
  7. PANTOPRAZOLE [Concomitant]
     Active Substance: PANTOPRAZOLE
     Indication: Prophylaxis
     Dates: start: 2018
  8. CETIRIZINE HYDROCHLORIDE [Concomitant]
     Active Substance: CETIRIZINE HYDROCHLORIDE
     Indication: Hypersensitivity
     Dosage: 10 MILLIGRAM, ONCE DAILY (QD)
     Dates: start: 20250117, end: 20250121
  9. PREDNISOLONE [Concomitant]
     Active Substance: PREDNISOLONE
     Indication: Hypersensitivity
     Dosage: 20 MILLIGRAM, ONCE DAILY (QD)
     Dates: start: 20250117, end: 20250119

REACTIONS (2)
  - Allergic respiratory symptom [Recovered/Resolved]
  - Dyspnoea [Recovered/Resolved]

NARRATIVE: CASE EVENT DATE: 20250116
